FAERS Safety Report 5142814-9 (Version None)
Quarter: 2006Q4

REPORT INFORMATION
  Report Type: 
  Country: None (occurrence: None)
  Receive Date: 20061027
  Receipt Date: 20061005
  Transmission Date: 20070319
  Serious: Yes (Other)
  Sender: FDA-Public Use
  Company Number: US200608006608

PATIENT
  Age: 52 Year
  Sex: Female
  Weight: 77.1 kg

DRUGS (6)
  1. EVISTA [Suspect]
     Indication: OSTEOPOROSIS
     Dates: start: 20030101, end: 20060101
  2. LEXAPRO /USA/ (ESCITALOPRAM) [Concomitant]
  3. ALLEGRA [Concomitant]
  4. BUSPAR /AUS/ (BUSPIRONE HYDROCHLORIDE) [Concomitant]
  5. FORTEO [Concomitant]
  6. FORTEO [Concomitant]

REACTIONS (4)
  - FALL [None]
  - HIP FRACTURE [None]
  - INTERVERTEBRAL DISC DEGENERATION [None]
  - INTERVERTEBRAL DISC PROTRUSION [None]
